FAERS Safety Report 9302956 (Version 1)
Quarter: 2013Q2

REPORT INFORMATION
  Report Type: Spontaneous
  Country: US (occurrence: None)
  Receive Date: 20130517
  Receipt Date: 20130517
  Transmission Date: 20140414
  Serious: Yes (Other)
  Sender: FDA-Public Use
  Company Number: 2013P1005845

PATIENT
  Age: 90 Year
  Sex: 0

DRUGS (1)
  1. RISPERIDONE [Suspect]
     Indication: OBSESSIVE THOUGHTS

REACTIONS (4)
  - Dyskinesia [None]
  - Withdrawal syndrome [None]
  - Eructation [None]
  - Hiccups [None]
